FAERS Safety Report 8778698 (Version 2)
Quarter: 2012Q4

REPORT INFORMATION
  Report Type: 
  Country: US (occurrence: US)
  Receive Date: 20120912
  Receipt Date: 20121017
  Transmission Date: 20130627
  Serious: No
  Sender: FDA-Public Use
  Company Number: US-PFIZER INC-2012223563

PATIENT
  Age: 81 Year
  Sex: Male
  Weight: 77.1 kg

DRUGS (16)
  1. LIPITOR [Suspect]
     Indication: DYSLIPIDAEMIA
     Dosage: 20 mg, 1x/day
     Route: 048
     Dates: start: 20120718, end: 20120825
  2. LIPITOR [Suspect]
     Indication: HYPERLIPIDAEMIA
  3. ALBUTEROL [Concomitant]
     Dosage: 90 mcg HFA AER Ad, 2 puffs every 6 hours
  4. ASA [Concomitant]
     Dosage: 1 DF, 1x/day
     Route: 048
  5. DIOVANE [Concomitant]
     Dosage: 80 mg, 2x/day
     Route: 048
  6. VITAMIN D2 [Concomitant]
     Dosage: 50000 IU, weekly x 90 days
     Route: 048
  7. FLOVENT [Concomitant]
     Dosage: 44mcg AER w/ADAP, 2 puffs inhaled
     Route: 055
  8. FOLIC ACID [Concomitant]
     Dosage: 1 mg, 1x/day
     Route: 048
  9. GLUCOPHAGE [Concomitant]
     Dosage: 500 mg, 4x/day
     Route: 048
  10. GLYBURIDE [Concomitant]
     Dosage: 10 mg, 2x/day
     Route: 048
  11. METHYLPREDNISOLONE [Concomitant]
     Dosage: UNK
     Route: 048
  12. MUCINEX D [Concomitant]
     Dosage: UNK
     Route: 048
  13. ROBITUSSIN AC ^ROBINS^ [Concomitant]
     Indication: COUGH
     Dosage: UNK, 5 ML (100-10MG15 SYRUP ) q8h as needed
     Route: 048
  14. TESSALON PERLE [Concomitant]
     Indication: COUGH
     Dosage: 100 mg, 3x/day, as needed
     Route: 048
  15. TOPROL-XL [Concomitant]
     Dosage: 50 mg, 1x/day
     Route: 048
  16. FLONASE [Concomitant]
     Dosage: 50 ug, 1x/day

REACTIONS (3)
  - Myalgia [Recovered/Resolved]
  - Muscular weakness [Recovered/Resolved]
  - Muscle spasms [Recovered/Resolved]
